FAERS Safety Report 12218408 (Version 2)
Quarter: 2016Q2

REPORT INFORMATION
  Report Type: Spontaneous
  Country: BR (occurrence: BR)
  Receive Date: 20160329
  Receipt Date: 20160415
  Transmission Date: 20160815
  Serious: Yes (Congenital Anomaly, Other)
  Sender: FDA-Public Use
  Company Number: BR-UNICHEM LABORATORIES LIMITED-UCM201603-000050

PATIENT
  Sex: Male
  Weight: 3.47 kg

DRUGS (3)
  1. DIVALPROEX SODIUM. [Suspect]
     Active Substance: DIVALPROEX SODIUM
  2. MISOPROSTOL. [Suspect]
     Active Substance: MISOPROSTOL
  3. CARBAMAZEPINE. [Suspect]
     Active Substance: CARBAMAZEPINE

REACTIONS (3)
  - Meningocele [Unknown]
  - Congenital cystic lung [Unknown]
  - Foetal exposure during pregnancy [Unknown]
